FAERS Safety Report 4667730-8 (Version None)
Quarter: 2005Q2

REPORT INFORMATION
  Report Type: 
  Country: None (occurrence: None)
  Receive Date: 20050520
  Receipt Date: 20020517
  Transmission Date: 20051028
  Serious: Yes (Hospitalization, Disabling, Other)
  Sender: FDA-Public Use
  Company Number: US-MERCK-0205USA02234

PATIENT
  Age: 59 Year
  Sex: Female
  Weight: 77 kg

DRUGS (8)
  1. FOSAMAX [Suspect]
     Indication: OSTEOPENIA
     Route: 048
     Dates: start: 19960101, end: 20010101
  2. FOSAMAX [Suspect]
     Route: 048
     Dates: start: 20010101, end: 20020401
  3. FOSAMAX [Suspect]
     Route: 048
  4. FEMHRT [Suspect]
     Route: 065
  5. ESTRACE [Suspect]
     Route: 065
  6. PROGESTERONE [Concomitant]
     Route: 065
  7. VIOXX [Concomitant]
     Route: 065
  8. PREMARIN [Concomitant]
     Route: 065

REACTIONS (8)
  - DRUG INTERACTION [None]
  - FALL [None]
  - FEMUR FRACTURE [None]
  - FOOT FRACTURE [None]
  - FRACTURE NONUNION [None]
  - GAIT DISTURBANCE [None]
  - OSTEOMA [None]
  - PAIN IN EXTREMITY [None]
